FAERS Safety Report 10742761 (Version 1)
Quarter: 2015Q1

REPORT INFORMATION
  Report Type: Spontaneous
  Country: FR (occurrence: FR)
  Receive Date: 20150127
  Receipt Date: 20150127
  Transmission Date: 20150721
  Serious: Yes (Death)
  Sender: FDA-Public Use
  Company Number: FR-SA-2015SA008350

PATIENT
  Age: 57 Year
  Sex: Female

DRUGS (4)
  1. SERESTA [Suspect]
     Active Substance: OXAZEPAM
     Indication: TOXICITY TO VARIOUS AGENTS
     Route: 048
     Dates: end: 20150104
  2. ABILIFY [Suspect]
     Active Substance: ARIPIPRAZOLE
     Indication: TOXICITY TO VARIOUS AGENTS
     Route: 048
     Dates: end: 20150104
  3. DOLIPRANE [Suspect]
     Active Substance: ACETAMINOPHEN
     Indication: TOXICITY TO VARIOUS AGENTS
     Route: 048
     Dates: end: 20150104
  4. STILNOX [Suspect]
     Active Substance: ZOLPIDEM TARTRATE
     Indication: TOXICITY TO VARIOUS AGENTS
     Route: 048
     Dates: end: 20150104

REACTIONS (1)
  - Death [Fatal]

NARRATIVE: CASE EVENT DATE: 20150106
